FAERS Safety Report 14865150 (Version 1)
Quarter: 2018Q2

REPORT INFORMATION
  Report Type: Other
  Country: None (occurrence: HR)
  Receive Date: 20180508
  Receipt Date: 20180508
  Transmission Date: 20180711
  Serious: Yes (Other)
  Sender: FDA-Public Use
  Company Number: HR-MARINA BIOTECH, INC.-2018MARINA000511

PATIENT

DRUGS (3)
  1. NORPREXANIL [Suspect]
     Active Substance: UNSPECIFIED INGREDIENT
     Indication: ESSENTIAL HYPERTENSION
     Dosage: 1 (10MG/10MG) TABLET, BID
     Route: 048
     Dates: start: 201206
  2. GLUCOPHAGE [Concomitant]
     Active Substance: METFORMIN HYDROCHLORIDE
     Dosage: 850 MG
  3. SORTIS [Concomitant]
     Active Substance: ATORVASTATIN
     Dosage: 20 MG

REACTIONS (5)
  - Product use issue [Unknown]
  - Skin ulcer [Not Recovered/Not Resolved]
  - Pruritus [Not Recovered/Not Resolved]
  - Overdose [Unknown]
  - Skin reaction [Not Recovered/Not Resolved]

NARRATIVE: CASE EVENT DATE: 201206
